FAERS Safety Report 9908023 (Version 1)
Quarter: 2014Q1

REPORT INFORMATION
  Report Type: Spontaneous
  Country: US (occurrence: None)
  Receive Date: 20140211
  Receipt Date: 20140211
  Transmission Date: 20141002
  Serious: Yes (Other)
  Sender: FDA-Public Use
  Company Number: JP-I-P-032315

PATIENT
  Age: 54 Year
  Sex: Male
  Weight: 90.9 kg

DRUGS (7)
  1. XYREM [Suspect]
     Indication: NARCOLEPSY
     Route: 048
     Dates: start: 200608, end: 2006
  2. PROVIGIL (MODADINIL) [Concomitant]
  3. CELEBREX (CELEXCOXIB) [Concomitant]
  4. ADVAIR HFA (FLUTICASONE PROPIONATE, SALMETEROL XINAFOATE) [Concomitant]
  5. TRAMADOL (TRAMADOL HYDROCHLORIDE) [Concomitant]
  6. LIPITOR (ATORVASTATIN CALCIUM) [Concomitant]
  7. ANITHYPERTENSIVES (ANTIHYPERTENSIVES) [Concomitant]

REACTIONS (3)
  - Arthropathy [None]
  - Condition aggravated [None]
  - Knee arthroplasty [None]
